FAERS Safety Report 9347082 (Version 2)
Quarter: 2013Q3

REPORT INFORMATION
  Report Type: Report from Study
  Country: NL (occurrence: NL)
  Receive Date: 20130613
  Receipt Date: 20130814
  Transmission Date: 20140515
  Serious: Yes (Death, Hospitalization, Other)
  Sender: FDA-Public Use
  Company Number: NL-GLAXOSMITHKLINE-B0897651A

PATIENT
  Age: 65 Year
  Sex: Male

DRUGS (12)
  1. PAZOPANIB [Suspect]
     Indication: RENAL CELL CARCINOMA
     Dosage: 800MG PER DAY
     Route: 048
     Dates: start: 20130305
  2. EVEROLIMUS [Suspect]
     Indication: RENAL CELL CARCINOMA
     Dosage: 10MG PER DAY
     Route: 048
     Dates: start: 20130430, end: 20130516
  3. DICLOFENAC [Concomitant]
     Dosage: 150MG PER DAY
     Dates: start: 20130305
  4. LYRICA [Concomitant]
     Route: 048
     Dates: start: 20130424
  5. PARACETAMOL [Concomitant]
     Dosage: 1000MG FOUR TIMES PER DAY
  6. DUROGESIC [Concomitant]
     Dates: start: 20130416
  7. MORPHINE [Concomitant]
     Dates: start: 20121112
  8. PANTOPRAZOLE [Concomitant]
     Dosage: 40MG PER DAY
  9. METOCLOPRAMIDE HCL [Concomitant]
     Dosage: 10MG THREE TIMES PER DAY
  10. SIMVASTATIN [Concomitant]
     Dosage: 20MG PER DAY
  11. TEMAZEPAM [Concomitant]
     Dosage: 10MG PER DAY
     Route: 048
  12. IMODIUM [Concomitant]
     Dosage: 2MG PER DAY
     Route: 048

REACTIONS (1)
  - Disease progression [Fatal]
